FAERS Safety Report 13073626 (Version 4)
Quarter: 2020Q3

REPORT INFORMATION
  Report Type: Report from Study
  Country: JP (occurrence: JP)
  Receive Date: 20161229
  Receipt Date: 20170808
  Transmission Date: 20201104
  Serious: Yes (Death, Hospitalization)
  Sender: FDA-Public Use
  Company Number: JP-JNJFOC-20161220399

PATIENT
  Age: 90 Year
  Sex: Male
  Weight: 50.1 kg

DRUGS (19)
  1. CHLORHEXIDINE GLUCONATE. [Concomitant]
     Active Substance: CHLORHEXIDINE GLUCONATE
     Indication: SKIN EROSION
     Route: 061
     Dates: start: 20160520
  2. PREDNISOLONE. [Suspect]
     Active Substance: PREDNISOLONE
     Indication: PLASMA CELL MYELOMA
     Route: 048
     Dates: start: 20151216
  3. LACTEC D [Concomitant]
     Indication: DECREASED APPETITE
     Route: 042
     Dates: start: 20161207, end: 20161207
  4. PROPETO [Concomitant]
     Indication: SKIN EROSION
     Route: 061
     Dates: start: 20161003
  5. DARATUMUMAB [Suspect]
     Active Substance: DARATUMUMAB
     Route: 042
  6. URIMOX [Concomitant]
     Indication: DRY SKIN
     Route: 061
     Dates: start: 20151202
  7. DAIPHEN [Concomitant]
     Active Substance: SULFAMETHOXAZOLE\TRIMETHOPRIM
     Indication: PROPHYLAXIS
     Route: 048
     Dates: start: 20160418, end: 20170119
  8. BARAMYCIN [Concomitant]
     Active Substance: BACITRACIN\NEOMYCIN SULFATE
     Indication: DECUBITUS ULCER
     Route: 061
     Dates: start: 20161128, end: 20161218
  9. ZOVIRAX [Concomitant]
     Active Substance: ACYCLOVIR
     Indication: PROPHYLAXIS
     Route: 048
     Dates: start: 20160331, end: 20170119
  10. VITAMEDIN [Concomitant]
     Active Substance: CYANOCOBALAMIN\PYRIDOXINE HYDROCHLORIDE\THIAMINE
     Indication: DECREASED APPETITE
     Dosage: 1 VIAL
     Route: 042
     Dates: start: 20161221, end: 20170125
  11. MELPHALAN. [Suspect]
     Active Substance: MELPHALAN
     Indication: PLASMA CELL MYELOMA
     Route: 048
     Dates: start: 20151215
  12. BONOTEO [Concomitant]
     Active Substance: MINODRONIC ACID
     Indication: OSTEOPOROSIS
     Route: 048
     Dates: start: 20151127, end: 20161220
  13. BFLUID [Concomitant]
     Active Substance: AMINO ACIDS\DEXTROSE\ELECTROLYTES NOS\VITAMINS
     Indication: DECREASED APPETITE
     Route: 042
     Dates: start: 20161219, end: 20161219
  14. DARATUMUMAB [Suspect]
     Active Substance: DARATUMUMAB
     Indication: PLASMA CELL MYELOMA
     Route: 042
     Dates: start: 20151215
  15. VELCADE [Suspect]
     Active Substance: BORTEZOMIB
     Indication: PLASMA CELL MYELOMA
     Route: 058
     Dates: start: 20151215
  16. KETOPROFEN. [Concomitant]
     Active Substance: KETOPROFEN
     Indication: LUMBAR SPINAL STENOSIS
     Route: 061
     Dates: start: 20160206, end: 20161220
  17. EKSALB [Concomitant]
     Indication: SKIN EROSION
     Route: 061
     Dates: start: 20161024, end: 20161225
  18. COBALAMIN [Concomitant]
     Active Substance: COBALAMIN
     Indication: DECREASED APPETITE
     Route: 042
     Dates: start: 20161219, end: 20161219
  19. VITAMEDIN [Concomitant]
     Active Substance: CYANOCOBALAMIN\PYRIDOXINE HYDROCHLORIDE\THIAMINE
     Indication: DECREASED APPETITE
     Dosage: 1 VIAL
     Route: 042
     Dates: start: 20161219, end: 20161219

REACTIONS (1)
  - Decubitus ulcer [Not Recovered/Not Resolved]

NARRATIVE: CASE EVENT DATE: 20161221
